FAERS Safety Report 18077440 (Version 1)
Quarter: 2020Q3

REPORT INFORMATION
  Report Type: Spontaneous
  Country: IT (occurrence: IT)
  Receive Date: 20200727
  Receipt Date: 20200727
  Transmission Date: 20201103
  Serious: Yes (Hospitalization)
  Sender: FDA-Public Use
  Company Number: IT-PFIZER INC-2020283315

PATIENT
  Age: 58 Year
  Sex: Male
  Weight: 76 kg

DRUGS (2)
  1. XGEVA [Suspect]
     Active Substance: DENOSUMAB
     Indication: METASTASES TO BONE
     Dosage: 120 MG, CYCLIC
     Route: 058
     Dates: start: 20180430, end: 20180924
  2. SUTENT [Suspect]
     Active Substance: SUNITINIB MALATE
     Indication: NEOPLASM PROSTATE
     Dosage: 50 MG, CYCLIC
     Route: 048
     Dates: start: 20180401, end: 20180930

REACTIONS (2)
  - Peri-implantitis [Recovering/Resolving]
  - Jaw fistula [Recovering/Resolving]

NARRATIVE: CASE EVENT DATE: 20180901
